FAERS Safety Report 11898128 (Version 1)
Quarter: 2016Q1

REPORT INFORMATION
  Report Type: Report from Study
  Country: CZ (occurrence: CZ)
  Receive Date: 20160108
  Receipt Date: 20160108
  Transmission Date: 20160526
  Serious: Yes (Other)
  Sender: FDA-Public Use
  Company Number: CZ-BAYER-2015-495021

PATIENT
  Age: 37 Year
  Sex: Female
  Weight: 92 kg

DRUGS (1)
  1. MIRENA [Suspect]
     Active Substance: LEVONORGESTREL
     Indication: CONTRACEPTION
     Dosage: 20 MCG/24HR, CONT
     Route: 015
     Dates: start: 20150921, end: 20151202

REACTIONS (3)
  - Deep vein thrombosis [None]
  - Pain in extremity [None]
  - Device expulsion [None]

NARRATIVE: CASE EVENT DATE: 2015
